FAERS Safety Report 5917468-1 (Version None)
Quarter: 2008Q4

REPORT INFORMATION
  Report Type: 
  Country: None (occurrence: None)
  Receive Date: 20081009
  Receipt Date: 20081009
  Transmission Date: 20090506
  Serious: Yes (Hospitalization)
  Sender: FDA-Public Use
  Company Number: None

PATIENT
  Age: 44 Year
  Sex: Female

DRUGS (2)
  1. IMITREX [Suspect]
     Indication: MIGRAINE
     Dosage: 1 TABLET THREE TIMES A DAY PO
     Route: 048
     Dates: start: 20080101, end: 20080804
  2. SEROQUEL [Suspect]
     Indication: DEPRESSION
     Dosage: 1 TABLET AT BEDTIME RECTAL
     Route: 054
     Dates: start: 20080101, end: 20080804

REACTIONS (4)
  - HYPERHIDROSIS [None]
  - INCORRECT DOSE ADMINISTERED [None]
  - SEROTONIN SYNDROME [None]
  - TONIC CLONIC MOVEMENTS [None]
